FAERS Safety Report 13260719 (Version 1)
Quarter: 2017Q1

REPORT INFORMATION
  Report Type: Spontaneous
  Country: US (occurrence: US)
  Receive Date: 20170222
  Receipt Date: 20170222
  Transmission Date: 20170428
  Serious: No
  Sender: FDA-Public Use
  Company Number: ALCN2017US001505

PATIENT
  Sex: Female

DRUGS (2)
  1. LATANOPROST. [Suspect]
     Active Substance: LATANOPROST
     Indication: INTRAOCULAR PRESSURE INCREASED
     Dosage: UNK
     Route: 047
  2. LATANOPROST. [Suspect]
     Active Substance: LATANOPROST
     Dosage: 2 GTT, QD
     Route: 047

REACTIONS (2)
  - Dark circles under eyes [Not Recovered/Not Resolved]
  - Eye colour change [Not Recovered/Not Resolved]
